FAERS Safety Report 6294821-0 (Version None)
Quarter: 2009Q3

REPORT INFORMATION
  Report Type: 
  Country: None (occurrence: None)
  Receive Date: 20090730
  Receipt Date: 20090723
  Transmission Date: 20100115
  Serious: Yes (Other)
  Sender: FDA-Public Use
  Company Number: CHPA2009US15848

PATIENT
  Age: 4 Year
  Sex: Female
  Weight: 15.9 kg

DRUGS (3)
  1. TRIAMINIC DAY TIME COLD + COUGH [Suspect]
     Indication: COUGH
     Dosage: 1 TSP, QD, ORAL
     Route: 048
     Dates: start: 20090716, end: 20090723
  2. TRIAMINIC DAY TIME COLD + COUGH [Suspect]
     Indication: NASAL CONGESTION
     Dosage: 1 TSP, QD, ORAL
     Route: 048
     Dates: start: 20090716, end: 20090723
  3. TRIAMINIC NASAL + SINUS CONGESTION [Suspect]
     Indication: NASAL CONGESTION
     Dosage: ONCE/SINGLE, NASAL
     Route: 045
     Dates: start: 20090722, end: 20090722

REACTIONS (6)
  - ABDOMINAL PAIN UPPER [None]
  - DRUG INEFFECTIVE [None]
  - DYSPNOEA [None]
  - INTENTIONAL DRUG MISUSE [None]
  - RESPIRATORY RATE INCREASED [None]
  - WHEEZING [None]
